FAERS Safety Report 16342156 (Version 1)
Quarter: 2019Q2

REPORT INFORMATION
  Report Type: Spontaneous
  Country: CA (occurrence: CA)
  Receive Date: 20190522
  Receipt Date: 20190522
  Transmission Date: 20190711
  Serious: Yes (Other)
  Sender: FDA-Public Use
  Company Number: CA-TEVA-2019-CA-1052571

PATIENT

DRUGS (1)
  1. TEVA-LOSARTAN FILMCOATED [Suspect]
     Active Substance: LOSARTAN
     Route: 048

REACTIONS (4)
  - Suspected product contamination [Unknown]
  - Blood pressure increased [Unknown]
  - Blood pressure inadequately controlled [Unknown]
  - Erosive oesophagitis [Unknown]
